FAERS Safety Report 6409186-0 (Version None)
Quarter: 2009Q4

REPORT INFORMATION
  Report Type: 
  Country: None (occurrence: None)
  Receive Date: 20091019
  Receipt Date: 20091019
  Transmission Date: 20100525
  Serious: No
  Sender: FDA-Public Use
  Company Number: None

PATIENT
  Age: 21 Year
  Sex: Female
  Weight: 47.6277 kg

DRUGS (1)
  1. ADDERALL 10 [Suspect]

REACTIONS (7)
  - COLD SWEAT [None]
  - DISORIENTATION [None]
  - HEART RATE INCREASED [None]
  - HYPOAESTHESIA [None]
  - LETHARGY [None]
  - SENSORY LOSS [None]
  - VISION BLURRED [None]
